FAERS Safety Report 8844260 (Version 1)
Quarter: 2012Q4

REPORT INFORMATION
  Report Type: 
  Country: US (occurrence: US)
  Receive Date: 20121017
  Receipt Date: 20121017
  Transmission Date: 20130627
  Serious: Yes (Hospitalization, Other)
  Sender: FDA-Public Use
  Company Number: US-SANOFI-AVENTIS-2012SA069524

PATIENT
  Age: 72 Year
  Sex: Male

DRUGS (3)
  1. LANTUS SOLOSTAR [Suspect]
     Indication: TYPE I DIABETES MELLITUS
     Dosage: Dose:24 unit(s)
     Route: 058
     Dates: start: 2008
  2. SOLOSTAR [Suspect]
     Indication: TYPE I DIABETES MELLITUS
     Dates: start: 2008
  3. NOVOLOG [Concomitant]

REACTIONS (3)
  - Urinary tract infection [Unknown]
  - Urinary tract disorder [Unknown]
  - Pulmonary oedema [Unknown]
